FAERS Safety Report 9683922 (Version 2)
Quarter: 2013Q4

REPORT INFORMATION
  Report Type: Spontaneous
  Country: US (occurrence: US)
  Receive Date: 20131112
  Receipt Date: 20131112
  Transmission Date: 20140711
  Serious: No
  Sender: FDA-Public Use
  Company Number: US-MALLINCKRODT-T201304368

PATIENT
  Age: 55 Year
  Sex: Female

DRUGS (5)
  1. FENTANYL TRANSDERMAL SYSTEM [Suspect]
     Indication: PAIN
     Dosage: 50 MCG/HR, Q 72 HOURS
     Route: 062
  2. FENTANYL PATCH [Suspect]
     Indication: PAIN
     Dosage: UNK
     Route: 062
  3. NEURONTIN [Concomitant]
     Dosage: UNK
  4. XANAX [Concomitant]
     Dosage: UNK
  5. EPITOL [Concomitant]
     Dosage: UNK

REACTIONS (4)
  - Therapeutic response unexpected [Not Recovered/Not Resolved]
  - Drug effect decreased [Not Recovered/Not Resolved]
  - Product adhesion issue [Recovered/Resolved]
  - Product physical issue [Recovered/Resolved]
